FAERS Safety Report 10187978 (Version 1)
Quarter: 2014Q2

REPORT INFORMATION
  Report Type: Spontaneous
  Country: US (occurrence: US)
  Receive Date: 20140522
  Receipt Date: 20140522
  Transmission Date: 20141212
  Serious: No
  Sender: FDA-Public Use
  Company Number: US-SA-2013SA105297

PATIENT
  Age: 78 Year
  Sex: Male

DRUGS (3)
  1. LANTUS SOLOSTAR [Suspect]
     Indication: TYPE 2 DIABETES MELLITUS
     Dosage: DOSE:VARIES?TAKEN FROM: 5-6 YEARS.
     Route: 051
  2. NOVOLOG [Suspect]
     Route: 065
  3. SOLOSTAR [Concomitant]
     Dosage: TAKEN FROM: 5-6 YEARS

REACTIONS (3)
  - Bronchitis [Unknown]
  - Blood glucose decreased [Unknown]
  - Blood glucose increased [Unknown]
